FAERS Safety Report 8132947-7 (Version None)
Quarter: 2012Q1

REPORT INFORMATION
  Report Type: 
  Country: None (occurrence: None)
  Receive Date: 20120213
  Receipt Date: 20120104
  Transmission Date: 20120608
  Serious: Yes (Death)
  Sender: FDA-Public Use
  Company Number: US-COVIDIEN/TYCO HEALTHCARE/MALLINCKRODT-T201200191

PATIENT
  Age: 52 Year
  Sex: Female

DRUGS (9)
  1. AMITRIPTYLINE HCL [Suspect]
     Route: 048
  2. PROPRANOLOL [Suspect]
     Route: 048
  3. GABAPENTIN [Suspect]
     Route: 048
  4. ETHANOL [Suspect]
     Route: 048
  5. CYCLOBENZAPRINE [Suspect]
     Route: 048
  6. AMPHETAMINES [Suspect]
     Route: 048
  7. GEMFIBROZIL [Suspect]
     Route: 048
  8. MORPHINE [Suspect]
     Route: 048
  9. METOCLOPRAMIDE HCL [Suspect]
     Route: 048

REACTIONS (2)
  - CARDIO-RESPIRATORY ARREST [None]
  - COMPLETED SUICIDE [None]
